FAERS Safety Report 11840836 (Version 1)
Quarter: 2015Q4

REPORT INFORMATION
  Report Type: Spontaneous
  Country: US (occurrence: US)
  Receive Date: 20151216
  Receipt Date: 20151216
  Transmission Date: 20160305
  Serious: Yes (Life-Threatening, Other)
  Sender: FDA-Public Use
  Company Number: US-ROXANE LABORATORIES, INC.-2015-RO-02088RO

PATIENT
  Age: 24 Year
  Sex: Female
  Weight: 79 kg

DRUGS (1)
  1. FLECAINIDE ACETATE. [Suspect]
     Active Substance: FLECAINIDE ACETATE
     Indication: PRODUCT USED FOR UNKNOWN INDICATION
     Route: 048

REACTIONS (5)
  - Compartment syndrome [Recovered/Resolved with Sequelae]
  - Cardiomyopathy [Unknown]
  - Generalised tonic-clonic seizure [Unknown]
  - Cardiac arrest [Recovered/Resolved]
  - Accidental exposure to product [Recovered/Resolved]
